FAERS Safety Report 4279980-3 (Version None)
Quarter: 2004Q1

REPORT INFORMATION
  Report Type: 
  Country: None (occurrence: None)
  Receive Date: 20040126
  Receipt Date: 20040120
  Transmission Date: 20041129
  Serious: Yes (Other)
  Sender: FDA-Public Use
  Company Number: GBWYE521920JAN04

PATIENT

DRUGS (1)
  1. EFFEXOR [Suspect]
     Dosage: 2 X 150MG CAPSULE

REACTIONS (2)
  - MEDICATION ERROR [None]
  - PRESCRIBED OVERDOSE [None]
